FAERS Safety Report 4942895-9 (Version None)
Quarter: 2006Q1

REPORT INFORMATION
  Report Type: 
  Country: None (occurrence: None)
  Receive Date: 20060309
  Receipt Date: 20060306
  Transmission Date: 20060701
  Serious: Yes (Death)
  Sender: FDA-Public Use
  Company Number: J081-002-002205

PATIENT
  Age: 82 Year
  Sex: Female

DRUGS (4)
  1. ARICEPT [Suspect]
     Dosage: 5 MG, 1 IN 1 D, ORAL
     Route: 048
  2. SYMMETREL [Concomitant]
  3. PAXIL [Concomitant]
  4. DOPS (DROXIDOPA) [Concomitant]

REACTIONS (2)
  - SUDDEN DEATH [None]
  - TREMOR [None]
